FAERS Safety Report 11934855 (Version 1)
Quarter: 2016Q1

REPORT INFORMATION
  Report Type: Spontaneous
  Country: US (occurrence: US)
  Receive Date: 20160121
  Receipt Date: 20160121
  Transmission Date: 20160526
  Serious: Yes (Other)
  Sender: FDA-Public Use
  Company Number: US-ENDO PHARMACEUTICALS INC.-2015-000324

PATIENT
  Age: 28 Year
  Sex: Male

DRUGS (2)
  1. OPANA ER [Suspect]
     Active Substance: OXYMORPHONE HYDROCHLORIDE
     Indication: BACK PAIN
     Route: 065
     Dates: start: 201502
  2. OXYMORPHONE ER [Concomitant]
     Active Substance: OXYMORPHONE
     Indication: BACK PAIN
     Route: 065
     Dates: end: 201502

REACTIONS (2)
  - Hepatic pain [Unknown]
  - Abdominal pain upper [Unknown]

NARRATIVE: CASE EVENT DATE: 201502
